FAERS Safety Report 6331892-7 (Version None)
Quarter: 2009Q3

REPORT INFORMATION
  Report Type: 
  Country: None (occurrence: None)
  Receive Date: 20090826
  Receipt Date: 20090811
  Transmission Date: 20100115
  Serious: Yes (Other)
  Sender: FDA-Public Use
  Company Number: DSU-2009-01131

PATIENT
  Sex: Male

DRUGS (2)
  1. BENICAR [Suspect]
     Indication: BLOOD PRESSURE
     Dosage: PER ORAL
     Route: 048
  2. HYZAAR (HYDROCHLOROTHIAZIDE, LOSARTAN POTASSIUM) (HYDROCHLOROTHIAZIDE, [Concomitant]

REACTIONS (2)
  - BLOOD PRESSURE INCREASED [None]
  - DRUG INEFFECTIVE [None]
